FAERS Safety Report 22343654 (Version 2)
Quarter: 2023Q2

REPORT INFORMATION
  Report Type: Spontaneous
  Country: JP (occurrence: JP)
  Receive Date: 20230519
  Receipt Date: 20230619
  Transmission Date: 20230722
  Serious: Yes (Hospitalization, Disabling, Other)
  Sender: FDA-Public Use
  Company Number: JP-TAKEDA-2023TJP006109

PATIENT
  Age: 46 Year
  Sex: Male
  Weight: 44.4 kg

DRUGS (9)
  1. ENTYVIO [Suspect]
     Active Substance: VEDOLIZUMAB
     Indication: Colitis ulcerative
     Dosage: 300 MILLIGRAM, Q8WEEKS
     Route: 041
     Dates: start: 20230406, end: 20230420
  2. MERCAPTOPURINE [Concomitant]
     Active Substance: MERCAPTOPURINE
     Indication: Colitis ulcerative
     Dosage: 0.3 GRAM, QD
     Route: 048
     Dates: start: 2013
  3. MERCAPTOPURINE [Concomitant]
     Active Substance: MERCAPTOPURINE
     Dosage: 0.4 GRAM
     Route: 048
     Dates: start: 20230420
  4. LIALDA [Concomitant]
     Active Substance: MESALAMINE
     Indication: Colitis ulcerative
     Dosage: 4.8 GRAM, QD
     Route: 048
  5. WATER FOR INJECTION [Concomitant]
     Active Substance: WATER
     Indication: Colitis ulcerative
     Dosage: 4.8 MILLILITER, QD
     Route: 041
     Dates: start: 20230406
  6. WATER FOR INJECTION [Concomitant]
     Active Substance: WATER
     Dosage: 4.8 MILLILITER, QD
     Route: 041
     Dates: start: 20230420, end: 20230420
  7. SODIUM CHLORIDE [Concomitant]
     Active Substance: SODIUM CHLORIDE
     Indication: Colitis ulcerative
     Dosage: 200 MILLILITER, QD
     Route: 041
     Dates: start: 20230406
  8. SODIUM CHLORIDE [Concomitant]
     Active Substance: SODIUM CHLORIDE
     Dosage: 200 MILLILITER
     Route: 041
     Dates: start: 20230420, end: 20230420
  9. BUDESONIDE [Concomitant]
     Active Substance: BUDESONIDE
     Indication: Colitis ulcerative
     Dosage: 2 MILLIGRAM, BID
     Route: 065
     Dates: start: 20230420

REACTIONS (6)
  - Cerebral artery embolism [Not Recovered/Not Resolved]
  - Cardiac dysfunction [Unknown]
  - Haematochezia [Unknown]
  - Pneumonia [Unknown]
  - C-reactive protein increased [Unknown]
  - Pyrexia [Unknown]

NARRATIVE: CASE EVENT DATE: 20230406
